FAERS Safety Report 16697671 (Version 1)
Quarter: 2019Q3

REPORT INFORMATION
  Report Type: Spontaneous
  Country: TH (occurrence: TH)
  Receive Date: 20190813
  Receipt Date: 20190813
  Transmission Date: 20191004
  Serious: Yes (Hospitalization)
  Sender: FDA-Public Use
  Company Number: PHHY2017TH086036

PATIENT
  Age: 14 Year
  Sex: Male

DRUGS (2)
  1. CARBAMAZEPINE. [Suspect]
     Active Substance: CARBAMAZEPINE
     Indication: PAROXYSMAL CHOREOATHETOSIS
     Dosage: 200 MG, QD
     Route: 065
  2. CARBAMAZEPINE. [Suspect]
     Active Substance: CARBAMAZEPINE
     Indication: DYSKINESIA

REACTIONS (5)
  - Product use in unapproved indication [Unknown]
  - Rash maculo-papular [Recovered/Resolved]
  - Stevens-Johnson syndrome [Recovered/Resolved]
  - Ocular hyperaemia [Recovered/Resolved]
  - Mouth ulceration [Recovered/Resolved]
